FAERS Safety Report 5071985-8 (Version None)
Quarter: 2006Q3

REPORT INFORMATION
  Report Type: 
  Country: None (occurrence: None)
  Receive Date: 20060801
  Receipt Date: 20060717
  Transmission Date: 20061208
  Serious: Yes (Other)
  Sender: FDA-Public Use
  Company Number: IMP_2368_2006

PATIENT
  Age: 34 Year
  Sex: Female

DRUGS (1)
  1. CLARITIN-D [Suspect]
     Indication: NASAL CONGESTION
     Dosage: 1 TAB ONCE PO
     Route: 048
     Dates: start: 20060716

REACTIONS (1)
  - FOREIGN BODY TRAUMA [None]
